FAERS Safety Report 6750228-0 (Version None)
Quarter: 2010Q2

REPORT INFORMATION
  Report Type: 
  Country: None (occurrence: None)
  Receive Date: 20100601
  Receipt Date: 20100520
  Transmission Date: 20101027
  Serious: Yes (Death, Hospitalization)
  Sender: FDA-Public Use
  Company Number: JP-PFIZER INC-2010063915

PATIENT
  Age: 64 Year
  Sex: Male
  Weight: 39.4 kg

DRUGS (5)
  1. SUNITINIB MALATE [Suspect]
     Indication: RENAL CELL CARCINOMA
     Dosage: 50 MG, 1X/DAY TDD 50 MG
     Route: 048
     Dates: start: 20090820, end: 20100125
  2. OXYCONTIN [Concomitant]
     Route: 048
  3. PROCHLORPERAZINE [Concomitant]
     Route: 048
  4. MAGNESIUM OXIDE [Concomitant]
     Route: 048
  5. NORVASC [Concomitant]
     Route: 048
     Dates: start: 20090824

REACTIONS (3)
  - EPISTAXIS [None]
  - RESPIRATORY FAILURE [None]
  - UPPER GASTROINTESTINAL HAEMORRHAGE [None]
